FAERS Safety Report 13974254 (Version 1)
Quarter: 2017Q3

REPORT INFORMATION
  Report Type: Spontaneous
  Country: FR (occurrence: FR)
  Receive Date: 20170915
  Receipt Date: 20170915
  Transmission Date: 20171128
  Serious: Yes (Other)
  Sender: FDA-Public Use
  Company Number: FR-AMGEN-FRASP2017137499

PATIENT
  Age: 56 Year
  Sex: Female

DRUGS (13)
  1. CARBOPLATIN. [Concomitant]
     Active Substance: CARBOPLATIN
  2. XGEVA [Suspect]
     Active Substance: DENOSUMAB
     Indication: LUNG ADENOCARCINOMA
     Dosage: UNK
     Route: 065
     Dates: start: 20160622, end: 201703
  3. GEMZAR [Suspect]
     Active Substance: GEMCITABINE HYDROCHLORIDE
     Indication: LUNG ADENOCARCINOMA
     Dosage: 2025 MG/CYCLE, UNK
     Route: 065
     Dates: start: 20170531
  4. INNOHEP [Concomitant]
     Active Substance: TINZAPARIN SODIUM
  5. REPAGLINIDE. [Concomitant]
     Active Substance: REPAGLINIDE
  6. VELMETIA [Concomitant]
     Active Substance: METFORMIN\SITAGLIPTIN
  7. TAXOTERE [Concomitant]
     Active Substance: DOCETAXEL
     Dosage: UNK
     Dates: start: 201703
  8. CISPLATIN. [Concomitant]
     Active Substance: CISPLATIN
  9. LANTUS [Concomitant]
     Active Substance: INSULIN GLARGINE
  10. PERINDOPRIL [Concomitant]
     Active Substance: PERINDOPRIL
  11. BISOPROLOL [Concomitant]
     Active Substance: BISOPROLOL
  12. NEXAVAR [Suspect]
     Active Substance: SORAFENIB
     Indication: LUNG ADENOCARCINOMA
     Dosage: 400 MG/CYCLE, UNK
     Route: 048
     Dates: start: 20170315, end: 201705
  13. PANTOPRAZOLE [Concomitant]
     Active Substance: PANTOPRAZOLE

REACTIONS (2)
  - Gingival abscess [Not Recovered/Not Resolved]
  - Osteonecrosis of jaw [Not Recovered/Not Resolved]

NARRATIVE: CASE EVENT DATE: 2017
